FAERS Safety Report 15270685 (Version 1)
Quarter: 2018Q3

REPORT INFORMATION
  Report Type: Spontaneous
  Country: US (occurrence: US)
  Receive Date: 20180726
  Receipt Date: 20180726
  Transmission Date: 20181010
  Serious: No
  Sender: FDA-Public Use
  Company Number: None

PATIENT
  Age: 48 Year
  Sex: Female
  Weight: 60.75 kg

DRUGS (7)
  1. PROGESTERONE. [Concomitant]
     Active Substance: PROGESTERONE
  2. AIMOVIG [Suspect]
     Active Substance: ERENUMAB-AOOE
     Indication: MIGRAINE
     Dates: start: 20180620
  3. ESTROGEN [Concomitant]
     Active Substance: ESTROGENS
  4. LIOTHYROID [Concomitant]
  5. LEVOTHROID [Concomitant]
     Active Substance: LEVOTHYROXINE SODIUM
  6. WELLBUTRIN [Concomitant]
     Active Substance: BUPROPION HYDROCHLORIDE
  7. NORCO [Concomitant]
     Active Substance: ACETAMINOPHEN\HYDROCODONE BITARTRATE

REACTIONS (3)
  - Condition aggravated [None]
  - Pain [None]
  - Migraine [None]

NARRATIVE: CASE EVENT DATE: 20180620
